FAERS Safety Report 14048697 (Version 4)
Quarter: 2018Q1

REPORT INFORMATION
  Report Type: Other
  Country: IT (occurrence: IT)
  Receive Date: 20171005
  Receipt Date: 20180306
  Transmission Date: 20180508
  Serious: Yes (Death, Other)
  Sender: FDA-Public Use
  Company Number: IT-ARIAD PHARMACEUTICALS, INC-2017IT009016

PATIENT
  Age: 70 Year
  Sex: Female

DRUGS (1)
  1. PONATINIB [Suspect]
     Active Substance: PONATINIB
     Indication: CHRONIC MYELOID LEUKAEMIA
     Dosage: 15 MG, QD
     Route: 048

REACTIONS (6)
  - Angina pectoris [Fatal]
  - Hypertension [Fatal]
  - Myocardial infarction [Fatal]
  - Hypertensive crisis [Fatal]
  - Malaise [Fatal]
  - Abdominal pain upper [Fatal]
